FAERS Safety Report 15997348 (Version 2)
Quarter: 2019Q1

REPORT INFORMATION
  Report Type: Spontaneous
  Country: FR (occurrence: FR)
  Receive Date: 20190222
  Receipt Date: 20190322
  Transmission Date: 20190418
  Serious: Yes (Life-Threatening, Disabling, Other)
  Sender: FDA-Public Use
  Company Number: PHHY2019FR041189

PATIENT
  Sex: Female

DRUGS (8)
  1. TEGRETOL [Concomitant]
     Active Substance: CARBAMAZEPINE
     Dosage: 4 DF, QD
     Route: 065
     Dates: start: 2013
  2. DIANE (CYPROTERONE ACETATE\ETHINYL ESTRADIOL) [Concomitant]
     Active Substance: CYPROTERONE ACETATE\ETHINYL ESTRADIOL
     Indication: PRODUCT USED FOR UNKNOWN INDICATION
     Dosage: UNK
     Route: 065
  3. CARBAMAZEPINE. [Suspect]
     Active Substance: CARBAMAZEPINE
     Dosage: 1 DF, Q8H
     Route: 048
     Dates: start: 200110
  4. SABRIL [Suspect]
     Active Substance: VIGABATRIN
     Indication: EPILEPSY
     Dosage: 4 DF, QD
     Route: 048
     Dates: start: 1982, end: 1998
  5. SABRIL [Suspect]
     Active Substance: VIGABATRIN
     Dosage: 2 DF, QD
     Route: 048
     Dates: start: 1998, end: 2001
  6. CARBAMAZEPINE. [Suspect]
     Active Substance: CARBAMAZEPINE
     Indication: PRODUCT USED FOR UNKNOWN INDICATION
     Dosage: 1 DF, Q8H
     Route: 048
     Dates: start: 1982, end: 2001
  7. SABRIL [Suspect]
     Active Substance: VIGABATRIN
     Dosage: 6 DF, QD
     Route: 048
     Dates: start: 19920726
  8. TEGRETOL [Concomitant]
     Active Substance: CARBAMAZEPINE
     Indication: EPILEPSY
     Dosage: 6 DF, QD
     Route: 048

REACTIONS (9)
  - Visual impairment [Recovering/Resolving]
  - Visual impairment [Not Recovered/Not Resolved]
  - Depression [Recovering/Resolving]
  - Visual field defect [Unknown]
  - Hypermetropia [Unknown]
  - Suicide attempt [Unknown]
  - Astigmatism [Unknown]
  - Weight abnormal [Recovering/Resolving]
  - Disorientation [Recovering/Resolving]

NARRATIVE: CASE EVENT DATE: 2001
